FAERS Safety Report 16190049 (Version 1)
Quarter: 2019Q2

REPORT INFORMATION
  Report Type: Report from Study
  Country: ES (occurrence: ES)
  Receive Date: 20190412
  Receipt Date: 20190412
  Transmission Date: 20190711
  Serious: Yes (Death)
  Sender: FDA-Public Use
  Company Number: ES-BAYER-2019-073923

PATIENT
  Age: 89 Year
  Sex: Female

DRUGS (6)
  1. UNIKET [Concomitant]
     Active Substance: ISOSORBIDE MONONITRATE
     Indication: ISCHAEMIC CARDIOMYOPATHY
     Dosage: 50 MG, QD
     Route: 048
     Dates: start: 2015, end: 20181219
  2. BISOPROLOL [Concomitant]
     Active Substance: BISOPROLOL
     Indication: HYPERTENSION
     Dosage: 5 MG, QD
     Route: 048
     Dates: start: 2015, end: 20181219
  3. LERCANIDIPINE [LERCANIDIPINE HYDROCHLORIDE] [Concomitant]
     Indication: HYPERTENSION
     Dosage: UNK
     Route: 048
     Dates: start: 20160126, end: 20181219
  4. ATORVASTATINA [ATORVASTATIN] [Concomitant]
     Active Substance: ATORVASTATIN
     Indication: DYSLIPIDAEMIA
     Dosage: 10 MG, QD
     Route: 048
     Dates: end: 20181219
  5. ACETILSALICILICO ACIDO [Suspect]
     Active Substance: ASPIRIN
     Indication: CARDIAC VALVE PROSTHESIS USER
     Dosage: 100 MG, QD
     Route: 048
     Dates: start: 2015, end: 20181219
  6. LOSARTAN AND HYDROCHLOROTHIAZIDE [Concomitant]
     Active Substance: HYDROCHLOROTHIAZIDE\LOSARTAN POTASSIUM
     Indication: HYPERTENSION
     Dosage: UNK
     Route: 048

REACTIONS (1)
  - Subdural haemorrhage [Fatal]

NARRATIVE: CASE EVENT DATE: 20181220
